FAERS Safety Report 13998094 (Version 4)
Quarter: 2017Q4

REPORT INFORMATION
  Report Type: Report from Study
  Country: None (occurrence: US)
  Receive Date: 20170921
  Receipt Date: 20171218
  Transmission Date: 20180321
  Serious: Yes (Hospitalization)
  Sender: FDA-Public Use
  Company Number: US-VIFOR (INTERNATIONAL) INC.-VIT-2017-09583

PATIENT
  Age: 85 Year
  Sex: Male
  Weight: 77.86 kg

DRUGS (19)
  1. NICOTINAMIDE [Concomitant]
     Active Substance: NIACINAMIDE
  2. GLIMEPIRIDE. [Concomitant]
     Active Substance: GLIMEPIRIDE
  3. TORASEMIDE [Concomitant]
     Active Substance: TORSEMIDE
  4. HYDROXYZINE HYDROCHLORIDE. [Concomitant]
     Active Substance: HYDROXYZINE HYDROCHLORIDE
  5. VELTASSA [Suspect]
     Active Substance: PATIROMER
     Indication: HYPERKALAEMIA
     Route: 048
     Dates: start: 20160202, end: 20171027
  6. ACETYLSALICYLIC ACID [Concomitant]
     Active Substance: ASPIRIN
  7. VELTASSA [Suspect]
     Active Substance: PATIROMER
     Route: 048
     Dates: start: 201709
  8. PANTOPRAZOLE [Concomitant]
     Active Substance: PANTOPRAZOLE
  9. SODIUM BICARBONATE. [Concomitant]
     Active Substance: SODIUM BICARBONATE
  10. SENNOSIDE A+B [Concomitant]
     Active Substance: SENNOSIDES A AND B
  11. ALLOPURINOL. [Concomitant]
     Active Substance: ALLOPURINOL
  12. COLESTOFF [Concomitant]
  13. METOPROLOL. [Concomitant]
     Active Substance: METOPROLOL
  14. GLUCOSAMINE [Concomitant]
     Active Substance: GLUCOSAMINE
  15. VITAMINS NOS [Concomitant]
     Active Substance: VITAMINS
  16. PLAVIX [Concomitant]
     Active Substance: CLOPIDOGREL BISULFATE
  17. SIMVASTATIN. [Concomitant]
     Active Substance: SIMVASTATIN
  18. LISINOPRIL. [Concomitant]
     Active Substance: LISINOPRIL
  19. PARACETAMOL [Concomitant]
     Active Substance: ACETAMINOPHEN

REACTIONS (2)
  - Dyspnoea [Recovered/Resolved]
  - Pulmonary oedema [Recovered/Resolved]

NARRATIVE: CASE EVENT DATE: 201709
